FAERS Safety Report 9028688 (Version 2)
Quarter: 2013Q1

REPORT INFORMATION
  Report Type: Spontaneous
  Country: CA (occurrence: CA)
  Receive Date: 20130124
  Receipt Date: 20130128
  Transmission Date: 20140127
  Serious: Yes (Death)
  Sender: FDA-Public Use
  Company Number: PHHY2013CA006358

PATIENT
  Age: 89 Year
  Sex: Female

DRUGS (13)
  1. ACLASTA [Suspect]
     Indication: OSTEOPOROSIS
     Dosage: 5 MG, UNK
     Route: 042
     Dates: start: 20090330
  2. ACLASTA [Suspect]
     Dosage: 5 MG, UNK
     Route: 042
     Dates: start: 20100416
  3. ACLASTA [Suspect]
     Dosage: 5 MG, UNK
     Route: 042
     Dates: start: 20110412
  4. ACLASTA [Suspect]
     Dosage: 5 MG, UNK
     Route: 042
     Dates: start: 20120412
  5. WARFARIN [Concomitant]
     Dosage: 3 MG X2 TAB
     Route: 048
  6. WARFARIN [Concomitant]
     Dosage: 1 MG X 2 TAB
     Route: 048
  7. JANUVIA [Concomitant]
     Dosage: 100 MGX1 TAB QD
     Route: 048
  8. RIVASTIGMINE [Concomitant]
     Dosage: 1.5 MG, BID
     Route: 048
  9. DILANTIN [Concomitant]
     Dosage: 30 MGX1 TAB QD
     Route: 048
  10. METFORMIN [Concomitant]
     Dosage: 500 MG, BID
     Route: 048
  11. ATORVASTATIN [Concomitant]
     Dosage: 10 MG, QD
     Route: 048
  12. ATENOLOL [Concomitant]
     Dosage: 25 MG, QD
     Route: 048
  13. MICARDIS [Concomitant]
     Dosage: 80 MGX1 TAB QD
     Route: 048

REACTIONS (1)
  - Brain stem stroke [Fatal]
